FAERS Safety Report 4862205-5 (Version None)
Quarter: 2005Q4

REPORT INFORMATION
  Report Type: 
  Country: None (occurrence: None)
  Receive Date: 20051221
  Receipt Date: 20051117
  Transmission Date: 20060501
  Serious: Yes (Other)
  Sender: FDA-Public Use
  Company Number: 2005AP05973

PATIENT
  Age: 77 Year
  Sex: Female
  Weight: 50 kg

DRUGS (3)
  1. MEROPEN [Suspect]
     Indication: URINARY TRACT INFECTION
     Route: 041
     Dates: start: 20051001, end: 20051001
  2. ZITHROMAX [Concomitant]
     Indication: URINARY TRACT INFECTION
     Route: 048
     Dates: start: 20051001, end: 20051003
  3. CIPROXAN [Concomitant]
     Indication: URINARY TRACT INFECTION
     Route: 041
     Dates: start: 20051001, end: 20051007

REACTIONS (1)
  - ANAPHYLACTIC SHOCK [None]
